FAERS Safety Report 6172796-2 (Version None)
Quarter: 2009Q2

REPORT INFORMATION
  Report Type: 
  Country: None (occurrence: None)
  Receive Date: 20090430
  Receipt Date: 20090426
  Transmission Date: 20091009
  Serious: Yes (Death)
  Sender: FDA-Public Use
  Company Number: HU-BRISTOL-MYERS SQUIBB COMPANY-14568653

PATIENT
  Age: 56 Year
  Sex: Male
  Weight: 71 kg

DRUGS (3)
  1. CETUXIMAB [Suspect]
     Indication: GASTROOESOPHAGEAL CANCER
     Dosage: FIRST INFUSION ON: 26JAN09 MOST RECENT INFUSION ON: 10MAR09;5MG/ML
     Route: 042
     Dates: start: 20090126
  2. CISPLATIN [Suspect]
     Indication: GASTROOESOPHAGEAL CANCER
     Dosage: ON DAY 1 OF CYCLE FIRST INFUSION ON 26JAN09 MOST RECENT INFUSION ON 10MAR09
     Route: 042
     Dates: start: 20090126
  3. CAPECITABINE [Suspect]
     Indication: GASTROOESOPHAGEAL CANCER
     Dosage: ON DAY 1-15 FIRST INFUSION:26JAN09 RECENT INFUSION:17MAR09 TEMPORARILY DISCONTINUED ON 17MAR09
     Route: 048
     Dates: start: 20090326

REACTIONS (1)
  - PULMONARY EMBOLISM [None]
